FAERS Safety Report 17811885 (Version 1)
Quarter: 2020Q2

REPORT INFORMATION
  Report Type: Spontaneous
  Country: DE (occurrence: DE)
  Receive Date: 20200521
  Receipt Date: 20200521
  Transmission Date: 20200714
  Serious: Yes (Other)
  Sender: FDA-Public Use
  Company Number: DE-TEVA-2020-DE-1237617

PATIENT
  Age: 35 Year
  Sex: Female
  Weight: 153 kg

DRUGS (12)
  1. PREDNISOLONE. [Suspect]
     Active Substance: PREDNISOLONE
     Indication: PRODUCT USED FOR UNKNOWN INDICATION
     Dosage: THERAPY START DATE AND END DATE: ASKED BUT UNKNOWN
     Route: 065
  2. ALLOPURINOL. [Suspect]
     Active Substance: ALLOPURINOL
     Indication: PRODUCT USED FOR UNKNOWN INDICATION
     Dosage: THERAPY START DATE AND END DATE: ASKED BUT UNKNOWN
     Route: 065
  3. ACICLOVIR [Suspect]
     Active Substance: ACYCLOVIR
     Indication: PRODUCT USED FOR UNKNOWN INDICATION
     Dosage: 200 MG, THERAPY START DATE AND END DATE: ASKED BUT UNKNOWN
     Route: 065
  4. FOLSAN [Suspect]
     Active Substance: FOLIC ACID
     Route: 065
  5. TACROLIMUS. [Suspect]
     Active Substance: TACROLIMUS
     Indication: PRODUCT USED FOR UNKNOWN INDICATION
     Dosage: THERAPY START DATE AND END DATE: ASKED BUT UNKNOWN
     Route: 065
  6. URSOFALK [Suspect]
     Active Substance: URSODIOL
     Dosage: THERAPY START DATE AND END DATE: ASKED BUT UNKNOWN
     Route: 065
  7. TOREM [Suspect]
     Active Substance: TORSEMIDE
     Indication: PRODUCT USED FOR UNKNOWN INDICATION
     Dosage: THERAPY START DATE AND END DATE: ASKED BUT UNKNOWN
     Route: 065
  8. ADVANTAN [Suspect]
     Active Substance: METHYLPREDNISOLONE ACEPONATE
     Indication: PRODUCT USED FOR UNKNOWN INDICATION
     Dosage: THERAPY START DATE AND END DATE: ASKED BUT UNKNOWN
     Route: 065
  9. COTRIMHEXAL FORTE [Suspect]
     Active Substance: SULFAMETHOXAZOLE\TRIMETHOPRIM
     Indication: PRODUCT USED FOR UNKNOWN INDICATION
     Dosage: 960 MG, THERAPY START DATE AND END DATE: ASKED BUT UNKNOWN
     Route: 065
  10. DEKRISTOL [Suspect]
     Active Substance: CHOLECALCIFEROL
     Indication: PRODUCT USED FOR UNKNOWN INDICATION
     Dosage: 20, IE, THERAPY END DATE: ASKED BUT UNKNOWN
     Route: 065
  11. NOXAFIL [Suspect]
     Active Substance: POSACONAZOLE
     Indication: PRODUCT USED FOR UNKNOWN INDICATION
     Dosage: THERAPY START DATE AND END DATE: ASKED BUT UNKNOWN
     Route: 065
  12. PANTOZOL [Suspect]
     Active Substance: PANTOPRAZOLE SODIUM
     Indication: PRODUCT USED FOR UNKNOWN INDICATION
     Dosage: THERAPY START DATE AND END DATE: ASKED BUT UNKNOWN
     Route: 065

REACTIONS (7)
  - Deep vein thrombosis [Unknown]
  - Dyspnoea [Unknown]
  - Musculoskeletal stiffness [Unknown]
  - Coagulation test abnormal [Unknown]
  - Pulmonary embolism [Unknown]
  - Peripheral swelling [Unknown]
  - Skin discolouration [Unknown]

NARRATIVE: CASE EVENT DATE: 20190213
